FAERS Safety Report 17217863 (Version 1)
Quarter: 2019Q4

REPORT INFORMATION
  Report Type: Spontaneous
  Country: GB (occurrence: GB)
  Receive Date: 20191231
  Receipt Date: 20191231
  Transmission Date: 20200122
  Serious: Yes (Hospitalization)
  Sender: FDA-Public Use
  Company Number: GB-TEVA-2019-GB-1159713

PATIENT
  Age: 59 Year
  Sex: Female
  Weight: 91 kg

DRUGS (14)
  1. OXYCODONE [Concomitant]
     Active Substance: OXYCODONE
  2. LINEZOLID. [Suspect]
     Active Substance: LINEZOLID
     Indication: INFECTION
     Dosage: 120 MG
     Route: 048
     Dates: start: 20191007, end: 20191023
  3. OMEPRAZOLE. [Concomitant]
     Active Substance: OMEPRAZOLE
     Dates: start: 20190929
  4. ONDANSETRON [Concomitant]
     Active Substance: ONDANSETRON
  5. MORPHINE [Concomitant]
     Active Substance: MORPHINE
  6. TRAMADOL. [Concomitant]
     Active Substance: TRAMADOL
  7. CIPROFLOXACIN. [Concomitant]
     Active Substance: CIPROFLOXACIN
     Dates: start: 20190929
  8. TEICOPLANIN [Concomitant]
     Active Substance: TEICOPLANIN
  9. ENOXAPARIN [Concomitant]
     Active Substance: ENOXAPARIN
  10. PARACETAMOL [Concomitant]
     Active Substance: ACETAMINOPHEN
     Dates: start: 20190929
  11. NAPROXEN. [Concomitant]
     Active Substance: NAPROXEN
     Dates: start: 20190929
  12. LACTULOSE. [Concomitant]
     Active Substance: LACTULOSE
  13. CODEINE [Concomitant]
     Active Substance: CODEINE
  14. FLUCLOXACILLIN [Concomitant]
     Active Substance: FLUCLOXACILLIN

REACTIONS (2)
  - Pallor [Recovered/Resolved]
  - Rash erythematous [Recovered/Resolved]

NARRATIVE: CASE EVENT DATE: 20191019
